FAERS Safety Report 8805357 (Version 1)
Quarter: 2012Q4

REPORT INFORMATION
  Report Type: 
  Country: CN (occurrence: CN)
  Receive Date: 20120924
  Receipt Date: 20120924
  Transmission Date: 20130627
  Serious: Yes (Death, Other)
  Sender: FDA-Public Use
  Company Number: CN-ROCHE-1135654

PATIENT
  Sex: Male

DRUGS (1)
  1. CELLCEPT [Suspect]
     Indication: RENAL TRANSPLANT
     Dosage: started on 30/Sep/2010
     Route: 048

REACTIONS (3)
  - Cerebral infarction [Fatal]
  - Blood pressure increased [Unknown]
  - Transplant rejection [Unknown]
